FAERS Safety Report 25490742 (Version 1)
Quarter: 2025Q2

REPORT INFORMATION
  Report Type: Spontaneous
  Country: JP (occurrence: JP)
  Receive Date: 20250627
  Receipt Date: 20250627
  Transmission Date: 20250717
  Serious: Yes (Hospitalization)
  Sender: ORGANON
  Company Number: JP-JT-EVA202502522ORGANON

PATIENT
  Age: 54 Year
  Sex: Male
  Weight: 115 kg

DRUGS (5)
  1. VTAMA [Suspect]
     Active Substance: TAPINAROF
     Indication: Psoriasis
     Route: 061
  2. ETRETINATE [Concomitant]
     Active Substance: ETRETINATE
     Dosage: 40 MILLIGRAM, QD
     Route: 048
  3. BETAMETHASONE DIPROPIONATE\CALCIPOTRIENE MONOHYDRATE [Concomitant]
     Active Substance: BETAMETHASONE DIPROPIONATE\CALCIPOTRIENE MONOHYDRATE
     Route: 003
  4. DIFLUCORTOLONE VALERATE [Concomitant]
     Active Substance: DIFLUCORTOLONE VALERATE
     Route: 003
  5. ZINC OXIDE [Concomitant]
     Active Substance: ZINC OXIDE
     Route: 003

REACTIONS (2)
  - Cerebral infarction [Unknown]
  - Application site erythema [Recovered/Resolved]
